FAERS Safety Report 16956724 (Version 1)
Quarter: 2019Q4

REPORT INFORMATION
  Report Type: Not Available
  Country: CA (occurrence: CA)
  Receive Date: 20191024
  Receipt Date: 20191024
  Transmission Date: 20200122
  Serious: Yes (Disabling, Other)
  Sender: FDA-Public Use
  Company Number: CA-CELGENEUS-CAN-20191006396

PATIENT
  Age: 40 Year
  Sex: Male
  Weight: 130 kg

DRUGS (27)
  1. HUMIRA [Suspect]
     Active Substance: ADALIMUMAB
     Indication: PSORIATIC ARTHROPATHY
     Route: 050
  2. HUMIRA [Suspect]
     Active Substance: ADALIMUMAB
     Indication: ANKYLOSING SPONDYLITIS
     Dosage: 40 MILLIGRAM
     Route: 058
  3. OTEZLA [Suspect]
     Active Substance: APREMILAST
     Indication: PSORIATIC ARTHROPATHY
     Route: 048
  4. OTEZLA [Suspect]
     Active Substance: APREMILAST
     Indication: PSORIASIS
  5. COSENTYX [Suspect]
     Active Substance: SECUKINUMAB
     Indication: PSORIASIS
  6. ENBREL [Suspect]
     Active Substance: ETANERCEPT
     Indication: PSORIASIS
  7. METHOTREXATE. [Suspect]
     Active Substance: METHOTREXATE
     Indication: PSORIATIC ARTHROPATHY
     Route: 065
  8. COSENTYX [Suspect]
     Active Substance: SECUKINUMAB
     Indication: PSORIATIC ARTHROPATHY
     Route: 065
  9. ENBREL [Suspect]
     Active Substance: ETANERCEPT
     Indication: PSORIATIC ARTHROPATHY
     Route: 065
  10. HUMIRA [Suspect]
     Active Substance: ADALIMUMAB
     Indication: PSORIASIS
  11. REMICADE [Suspect]
     Active Substance: INFLIXIMAB
     Indication: PSORIATIC ARTHROPATHY
     Route: 042
  12. STELARA [Suspect]
     Active Substance: USTEKINUMAB
     Indication: PSORIATIC ARTHROPATHY
     Route: 050
  13. STELARA [Suspect]
     Active Substance: USTEKINUMAB
     Indication: ANKYLOSING SPONDYLITIS
     Route: 058
  14. ENBREL [Suspect]
     Active Substance: ETANERCEPT
     Indication: ANKYLOSING SPONDYLITIS
  15. SULFASALAZINE. [Suspect]
     Active Substance: SULFASALAZINE
     Indication: PSORIATIC ARTHROPATHY
     Route: 065
  16. METHOTREXATE. [Suspect]
     Active Substance: METHOTREXATE
     Indication: ANKYLOSING SPONDYLITIS
  17. DICLOFENAC [Suspect]
     Active Substance: DICLOFENAC
     Indication: PRODUCT USED FOR UNKNOWN INDICATION
     Route: 065
  18. NAPROSYN [Suspect]
     Active Substance: NAPROXEN
     Indication: PRODUCT USED FOR UNKNOWN INDICATION
     Route: 065
  19. REMICADE [Suspect]
     Active Substance: INFLIXIMAB
     Indication: ANKYLOSING SPONDYLITIS
     Route: 050
  20. STELARA [Suspect]
     Active Substance: USTEKINUMAB
     Indication: PSORIASIS
  21. INFLIXIMAB [Suspect]
     Active Substance: INFLIXIMAB
     Indication: ANKYLOSING SPONDYLITIS
  22. REMICADE [Suspect]
     Active Substance: INFLIXIMAB
     Indication: PSORIASIS
  23. OTEZLA [Suspect]
     Active Substance: APREMILAST
     Indication: ANKYLOSING SPONDYLITIS
  24. COSENTYX [Suspect]
     Active Substance: SECUKINUMAB
     Indication: ANKYLOSING SPONDYLITIS
     Route: 065
  25. INFLIXIMAB [Suspect]
     Active Substance: INFLIXIMAB
     Indication: PSORIATIC ARTHROPATHY
     Dosage: 3 MILLIGRAM/KILOGRAM
     Route: 042
  26. METHOTREXATE. [Suspect]
     Active Substance: METHOTREXATE
     Indication: PSORIASIS
  27. SULFASALAZINE. [Suspect]
     Active Substance: SULFASALAZINE
     Indication: PSORIASIS
     Route: 058

REACTIONS (4)
  - Off label use [Not Recovered/Not Resolved]
  - Drug ineffective [Not Recovered/Not Resolved]
  - Infection [Not Recovered/Not Resolved]
  - Disability [Not Recovered/Not Resolved]
